FAERS Safety Report 16212080 (Version 1)
Quarter: 2019Q2

REPORT INFORMATION
  Report Type: Spontaneous
  Country: US (occurrence: US)
  Receive Date: 20190417
  Receipt Date: 20190417
  Transmission Date: 20190711
  Serious: Yes (Other)
  Sender: FDA-Public Use
  Company Number: None

PATIENT
  Age: 36 Year
  Sex: Male

DRUGS (2)
  1. GENERIC BUPRENORPHRINE/NALOXONE FILM [Concomitant]
     Dates: start: 20190403, end: 20190416
  2. GENERIC SUBOXONE FILME [Suspect]
     Active Substance: BUPRENORPHINE HYDROCHLORIDE\NALOXONE HYDROCHLORIDE
     Indication: DRUG USE DISORDER
     Route: 060
     Dates: start: 20190403, end: 20190416

REACTIONS (2)
  - Tongue blistering [None]
  - Product substitution issue [None]

NARRATIVE: CASE EVENT DATE: 20190403
